FAERS Safety Report 9294875 (Version 2)
Quarter: 2013Q2

REPORT INFORMATION
  Report Type: Spontaneous
  Country: US (occurrence: None)
  Receive Date: 20121227
  Receipt Date: 20130507
  Transmission Date: 20140414
  Serious: No
  Sender: FDA-Public Use
  Company Number: PHEH2012US021164

PATIENT
  Age: 47 Year
  Sex: Female
  Weight: 90 kg

DRUGS (6)
  1. AFINITOR (RAD) [Suspect]
     Indication: BREAST CANCER
     Route: 048
     Dates: start: 20120711
  2. EXEMESTANE (EXEMESTANE) [Concomitant]
  3. CITALOPRAM (CITALOPRAM) [Concomitant]
  4. VICODIN (HYDROCODONE BITARTRATE, PARACETAMOL) [Concomitant]
  5. MORPHINE SULPHATE (MORPHINE SULFATE) [Concomitant]
  6. VITAMIN D (ERGOCALCIFEROL) [Concomitant]

REACTIONS (4)
  - Weight decreased [None]
  - Oral pain [None]
  - Rash [None]
  - Fatigue [None]
